FAERS Safety Report 17684594 (Version 1)
Quarter: 2020Q2

REPORT INFORMATION
  Report Type: Spontaneous
  Country: US (occurrence: US)
  Receive Date: 20200417
  Receipt Date: 20200417
  Transmission Date: 20200714
  Serious: Yes (Other)
  Sender: FDA-Public Use
  Company Number: None

PATIENT
  Age: 66 Year
  Sex: Female

DRUGS (37)
  1. FORTEO [Suspect]
     Active Substance: TERIPARATIDE
     Indication: VITAMIN D DEFICIENCY
     Route: 058
     Dates: start: 20190516
  2. CYANOCOBALAM [Concomitant]
     Active Substance: CYANOCOBALAMIN
  3. LEVOCETRIRIZI [Concomitant]
  4. LOTEPREDNOL [Concomitant]
     Active Substance: LOTEPREDNOL
  5. OMEPRAZOLE. [Concomitant]
     Active Substance: OMEPRAZOLE
  6. ALPRAZOLAM. [Concomitant]
     Active Substance: ALPRAZOLAM
  7. GABAPENTIN. [Concomitant]
     Active Substance: GABAPENTIN
  8. PRAVASTATIN. [Concomitant]
     Active Substance: PRAVASTATIN
  9. FORTEO [Suspect]
     Active Substance: TERIPARATIDE
     Indication: SENILE OSTEOPOROSIS
     Route: 058
     Dates: start: 20190516
  10. ASPIRIN. [Concomitant]
     Active Substance: ASPIRIN
  11. FLUTICASONE. [Concomitant]
     Active Substance: FLUTICASONE
  12. POYMYXIN [Concomitant]
  13. TEMAZEPAM. [Concomitant]
     Active Substance: TEMAZEPAM
  14. CARVEDILOL. [Concomitant]
     Active Substance: CARVEDILOL
  15. HYDROCHLOROT [Concomitant]
     Active Substance: HYDROCHLOROTHIAZIDE
  16. ALPHAGAN P [Concomitant]
     Active Substance: BRIMONIDINE TARTRATE
  17. GLIMEPRIDE [Concomitant]
     Active Substance: GLIMEPIRIDE
  18. METHOCARBAM [Concomitant]
     Active Substance: METHOCARBAMOL
  19. MONTELUKAST [Concomitant]
     Active Substance: MONTELUKAST SODIUM
  20. PAROXETINE. [Concomitant]
     Active Substance: PAROXETINE
  21. VALSARTAN. [Concomitant]
     Active Substance: VALSARTAN
  22. VITAMIN D [Concomitant]
     Active Substance: VITAMIN D NOS
  23. JANUMET [Concomitant]
     Active Substance: METFORMIN HYDROCHLORIDE\SITAGLIPTIN PHOSPHATE
  24. MAG OXID [Concomitant]
  25. PRAMIPEXOLE. [Concomitant]
     Active Substance: PRAMIPEXOLE
  26. PREDNISONE. [Concomitant]
     Active Substance: PREDNISONE
  27. SMZ/TMP [Concomitant]
     Active Substance: SULFAMETHOXAZOLE\TRIMETHOPRIM
  28. AMIODARONE [Concomitant]
     Active Substance: AMIODARONE
  29. BESIVANCE [Concomitant]
     Active Substance: BESIFLOXACIN
  30. DOXYXYXL [Concomitant]
  31. LEVOTHYROXIN [Concomitant]
     Active Substance: LEVOTHYROXINE
  32. POT CL [Concomitant]
  33. RESTASIS [Concomitant]
     Active Substance: CYCLOSPORINE
  34. AMLODIPIN [Concomitant]
     Active Substance: AMLODIPINE BESYLATE
  35. ENTRESTO [Concomitant]
     Active Substance: SACUBITRIL\VALSARTAN
  36. MYCOPHNOLIC [Concomitant]
  37. PILOCARPINE. [Concomitant]
     Active Substance: PILOCARPINE

REACTIONS (1)
  - Myocardial infarction [None]

NARRATIVE: CASE EVENT DATE: 20200405
